FAERS Safety Report 16638326 (Version 1)
Quarter: 2019Q3

REPORT INFORMATION
  Report Type: Report from Study
  Country: US (occurrence: US)
  Receive Date: 20190726
  Receipt Date: 20190726
  Transmission Date: 20191004
  Serious: Yes (Hospitalization)
  Sender: FDA-Public Use
  Company Number: US-JNJFOC-20190217430

PATIENT
  Age: 70 Year
  Sex: Male

DRUGS (3)
  1. IMBRUVICA [Suspect]
     Active Substance: IBRUTINIB
     Indication: B-CELL SMALL LYMPHOCYTIC LYMPHOMA
     Route: 048
     Dates: start: 20180919
  2. IMBRUVICA [Suspect]
     Active Substance: IBRUTINIB
     Indication: CHRONIC LYMPHOCYTIC LEUKAEMIA
     Route: 048
     Dates: start: 20190301
  3. IMBRUVICA [Suspect]
     Active Substance: IBRUTINIB
     Route: 048
     Dates: start: 20190525, end: 2019

REACTIONS (10)
  - Blood blister [Recovered/Resolved]
  - Atrial fibrillation [Unknown]
  - Diarrhoea [Unknown]
  - Blister [Unknown]
  - Ulcer [Unknown]
  - Contusion [Unknown]
  - Angina bullosa haemorrhagica [Recovered/Resolved]
  - Bronchitis [Recovered/Resolved]
  - Toxicity to various agents [Unknown]
  - Atrial flutter [Recovering/Resolving]

NARRATIVE: CASE EVENT DATE: 20190111
